FAERS Safety Report 5804167-X (Version None)
Quarter: 2008Q3

REPORT INFORMATION
  Report Type: 
  Country: None (occurrence: None)
  Receive Date: 20080709
  Receipt Date: 20080702
  Transmission Date: 20090109
  Serious: Yes (Other)
  Sender: FDA-Public Use
  Company Number: DE-JNJFOC-20080400411

PATIENT
  Sex: Male
  Weight: 71.5 kg

DRUGS (2)
  1. INVEGA [Suspect]
     Indication: PSYCHOTIC DISORDER
     Route: 048
  2. MELNEURIN [Concomitant]
     Route: 065

REACTIONS (4)
  - BLOOD PROLACTIN INCREASED [None]
  - DISTURBANCE IN SOCIAL BEHAVIOUR [None]
  - GYNAECOMASTIA [None]
  - PRIAPISM [None]
